FAERS Safety Report 4979593-1 (Version None)
Quarter: 2006Q2

REPORT INFORMATION
  Report Type: 
  Country: None (occurrence: None)
  Receive Date: 20060418
  Receipt Date: 20060406
  Transmission Date: 20061013
  Serious: Yes (Life-Threatening, Hospitalization, Disabling, Other)
  Sender: FDA-Public Use
  Company Number: SUS1-2006-00387

PATIENT
  Age: 58 Year
  Sex: Male

DRUGS (4)
  1. PENTASA [Suspect]
     Dosage: 4 G DAILY, ORAL
     Route: 048
     Dates: start: 20060316, end: 20060321
  2. ZUCLOPENTHIXOL  (ZUCLOPENTHIXOL) [Concomitant]
  3. LEVOTHYROXINE SODIUM [Concomitant]
  4. THIAMINE (THIAMINE [Concomitant]

REACTIONS (1)
  - HAEMOLYTIC ANAEMIA [None]
